FAERS Safety Report 21610991 (Version 1)
Quarter: 2022Q4

REPORT INFORMATION
  Report Type: Spontaneous
  Country: US (occurrence: None)
  Receive Date: 20221117
  Receipt Date: 20221117
  Transmission Date: 20230112
  Serious: Yes (Other)
  Sender: FDA-Public Use
  Company Number: None

PATIENT
  Age: 52 Year
  Sex: Male
  Weight: 101.25 kg

DRUGS (1)
  1. ATORVASTATIN [Suspect]
     Active Substance: ATORVASTATIN
     Indication: Hypercholesterolaemia
     Dosage: OTHER QUANTITY : 45 TABLET(S);?
     Route: 048
     Dates: start: 20220627, end: 20221104

REACTIONS (5)
  - Myalgia [None]
  - Malaise [None]
  - Fatigue [None]
  - Lethargy [None]
  - Feeling abnormal [None]

NARRATIVE: CASE EVENT DATE: 20221104
